FAERS Safety Report 15124079 (Version 1)
Quarter: 2018Q3

REPORT INFORMATION
  Report Type: Spontaneous
  Country: US (occurrence: IT)
  Receive Date: 20180710
  Receipt Date: 20180710
  Transmission Date: 20181010
  Serious: Yes (Hospitalization, Other)
  Sender: FDA-Public Use
  Company Number: IT-TEVA-2018-IT-923593

PATIENT
  Age: 54 Year
  Sex: Female

DRUGS (1)
  1. DICLOFENAC [Suspect]
     Active Substance: DICLOFENAC
     Indication: MYALGIA
     Route: 048
     Dates: start: 20121001, end: 20121007

REACTIONS (7)
  - Chest pain [Unknown]
  - Blood pressure increased [Unknown]
  - Heart rate increased [Unknown]
  - Abdominal pain upper [Recovering/Resolving]
  - Haematemesis [Recovering/Resolving]
  - Dyspepsia [Recovering/Resolving]
  - Overdose [Recovering/Resolving]

NARRATIVE: CASE EVENT DATE: 20121006
